FAERS Safety Report 24442279 (Version 2)
Quarter: 2024Q4

REPORT INFORMATION
  Report Type: Spontaneous
  Country: CL (occurrence: CL)
  Receive Date: 20241016
  Receipt Date: 20241017
  Transmission Date: 20250114
  Serious: No
  Sender: ROCHE
  Company Number: CL-ROCHE-3534230

PATIENT
  Sex: Male
  Weight: 34.0 kg

DRUGS (4)
  1. HEMLIBRA [Suspect]
     Active Substance: EMICIZUMAB-KXWH
     Indication: Product used for unknown indication
     Dosage: LOADING DOSE, 105MG/0.7ML
     Route: 058
     Dates: start: 202312
  2. HEMLIBRA [Suspect]
     Active Substance: EMICIZUMAB-KXWH
     Dosage: MAINTENANCE DOSE
     Route: 058
  3. HEMLIBRA [Suspect]
     Active Substance: EMICIZUMAB-KXWH
     Dosage: LOADING DOSE, 60 MG/0.4 ML
     Route: 058
     Dates: start: 202312
  4. HEMLIBRA [Suspect]
     Active Substance: EMICIZUMAB-KXWH
     Route: 058

REACTIONS (4)
  - Off label use [Unknown]
  - Underdose [Unknown]
  - No adverse event [Unknown]
  - Off label use [Unknown]
